FAERS Safety Report 6589284-1 (Version None)
Quarter: 2010Q1

REPORT INFORMATION
  Report Type: 
  Country: None (occurrence: None)
  Receive Date: 20100218
  Receipt Date: 20100209
  Transmission Date: 20100710
  Serious: Yes (Other)
  Sender: FDA-Public Use
  Company Number: US-PFIZER INC-2010018379

PATIENT
  Sex: Female
  Weight: 90.703 kg

DRUGS (2)
  1. LIPITOR [Suspect]
     Indication: BLOOD CHOLESTEROL INCREASED
     Dosage: 10 MG, 1X/DAY
     Route: 048
     Dates: start: 20050101
  2. NORVASC [Concomitant]
     Dosage: UNK

REACTIONS (2)
  - BENIGN HEPATIC NEOPLASM [None]
  - HEPATIC ENZYME INCREASED [None]
